FAERS Safety Report 26190521 (Version 1)
Quarter: 2025Q4

REPORT INFORMATION
  Report Type: Spontaneous
  Country: US (occurrence: None)
  Receive Date: 20251222
  Receipt Date: 20251222
  Transmission Date: 20260118
  Serious: No
  Sender: FDA-CTU
  Company Number: None

PATIENT
  Age: 52 Year
  Sex: Female
  Weight: 81.9 kg

DRUGS (8)
  1. BUPROPION [Suspect]
     Active Substance: BUPROPION
     Indication: Depression
     Dosage: FREQUENCY : TWICE A DAY;
     Route: 048
     Dates: start: 20251216
  2. BUPROPION [Suspect]
     Active Substance: BUPROPION
     Indication: Weight decreased
  3. PHENTERMINE [Suspect]
     Active Substance: PHENTERMINE
  4. WELLBUTRIN [Concomitant]
     Active Substance: BUPROPION HYDROCHLORIDE
  5. AREDS eye vitamins [Concomitant]
  6. ADVIL [Concomitant]
     Active Substance: IBUPROFEN
  7. TYLENOL [Concomitant]
     Active Substance: ACETAMINOPHEN
  8. .DELTA.8-TETRAHYDROCANNABINOL\HERBALS [Concomitant]
     Active Substance: .DELTA.8-TETRAHYDROCANNABINOL\HERBALS

REACTIONS (3)
  - Dizziness [None]
  - Muscle twitching [None]
  - Muscle spasms [None]

NARRATIVE: CASE EVENT DATE: 20251221
